FAERS Safety Report 18735562 (Version 2)
Quarter: 2021Q1

REPORT INFORMATION
  Report Type: Spontaneous
  Country: US (occurrence: US)
  Receive Date: 20210113
  Receipt Date: 20210304
  Transmission Date: 20210419
  Serious: Yes (Hospitalization)
  Sender: FDA-Public Use
  Company Number: US-TEVA-2021-US-1867451

PATIENT
  Age: 65 Year
  Sex: Female

DRUGS (2)
  1. GEMCITABINE. [Suspect]
     Active Substance: GEMCITABINE
     Indication: BREAST CANCER METASTATIC
  2. GEMCITABINE. [Suspect]
     Active Substance: GEMCITABINE
     Indication: INVASIVE DUCTAL BREAST CARCINOMA
     Dosage: FOR 3 WEEKS/MONTH SINCE ONE YEAR; LAST DOSE ADMINISTERED 4 WEEKS PRIOR TO PRESENTATION
     Route: 065

REACTIONS (4)
  - Renal impairment [Recovering/Resolving]
  - Thrombotic microangiopathy [Recovering/Resolving]
  - Anaemia [Unknown]
  - Hypertension [Recovered/Resolved]
